FAERS Safety Report 9441837 (Version 2)
Quarter: 2013Q3

REPORT INFORMATION
  Report Type: Spontaneous
  Country: JP (occurrence: None)
  Receive Date: 20130801
  Receipt Date: 20130913
  Transmission Date: 20140515
  Serious: Yes (Other)
  Sender: FDA-Public Use
  Company Number: JP-011938

PATIENT
  Age: 68 Year
  Sex: Male
  Weight: 58 kg

DRUGS (6)
  1. GONAX [Suspect]
     Indication: PROSTATE CANCER
     Route: 058
     Dates: start: 20130425, end: 20130425
  2. GONAX [Suspect]
     Indication: CANCER HORMONAL THERAPY
     Route: 058
     Dates: start: 20130425, end: 20130425
  3. DOCETAXEL [Concomitant]
  4. ENDOXAN / 00021102 [Concomitant]
  5. UFT [Concomitant]
  6. ESTRACYT / 00327002 [Concomitant]

REACTIONS (9)
  - Injection site pain [None]
  - Injection site swelling [None]
  - Pyrexia [None]
  - Decreased appetite [None]
  - Blood urine present [None]
  - Urinary tract infection [None]
  - Injection site discolouration [None]
  - Injection site induration [None]
  - Condition aggravated [None]
